FAERS Safety Report 8812708 (Version 1)
Quarter: 2012Q4

REPORT INFORMATION
  Report Type: 
  Country: FR (occurrence: FR)
  Receive Date: 20120927
  Receipt Date: 20120927
  Transmission Date: 20130627
  Serious: Yes (Other)
  Sender: FDA-Public Use
  Company Number: FR-GILEAD-2012-0061918

PATIENT
  Age: 58 Year
  Sex: Male

DRUGS (1)
  1. ADEFOVIR DIPIVOXIL [Suspect]
     Indication: HEPATITIS B
     Dosage: 10 mg, QD
     Route: 048
     Dates: start: 2002, end: 200807

REACTIONS (3)
  - Kidney fibrosis [Unknown]
  - Hyperparathyroidism [Unknown]
  - Osteomalacia [Recovering/Resolving]
